FAERS Safety Report 5074959-6 (Version None)
Quarter: 2006Q3

REPORT INFORMATION
  Report Type: 
  Country: None (occurrence: None)
  Receive Date: 20060804
  Receipt Date: 20060722
  Transmission Date: 20061208
  Serious: Yes (Other)
  Sender: FDA-Public Use
  Company Number: 2006072197

PATIENT
  Sex: Female

DRUGS (3)
  1. SUTENT [Suspect]
     Dosage: 50 M G (50 MG, FREQUENCY: QD INTERVAL EVERY DAY), ORAL
     Route: 048
     Dates: start: 20060522, end: 20060525
  2. SUTENT [Suspect]
     Dosage: 50 M G (50 MG, FREQUENCY: QD INTERVAL EVERY DAY), ORAL
     Route: 048
     Dates: start: 20060601, end: 20060622
  3. SUTENT [Suspect]
     Dosage: 50 M G (50 MG, FREQUENCY: QD INTERVAL EVERY DAY), ORAL
     Route: 048
     Dates: start: 20060623

REACTIONS (5)
  - ALANINE AMINOTRANSFERASE INCREASED [None]
  - ASPARTATE AMINOTRANSFERASE INCREASED [None]
  - BLOOD ALKALINE PHOSPHATASE INCREASED [None]
  - FEBRILE NEUTROPENIA [None]
  - HEPATOTOXICITY [None]
